FAERS Safety Report 23776112 (Version 3)
Quarter: 2024Q2

REPORT INFORMATION
  Report Type: Spontaneous
  Country: US (occurrence: US)
  Receive Date: 20240424
  Receipt Date: 20240508
  Transmission Date: 20240716
  Serious: Yes (Hospitalization, Other)
  Sender: FDA-Public Use
  Company Number: US-AMGEN-USASP2024078448

PATIENT
  Age: 58 Year
  Sex: Male

DRUGS (6)
  1. RIABNI [Suspect]
     Active Substance: RITUXIMAB-ARRX
     Indication: Non-Hodgkin^s lymphoma
     Dosage: 700 MILLIGRAM, Q3WK (EVERY 21 DAYS) (2 X 100MG)
     Route: 065
  2. RIABNI [Suspect]
     Active Substance: RITUXIMAB-ARRX
     Dosage: 700 MILLIGRAM, Q3WK ( 1 X 500MG) (EVERY 21 DAYS)
     Route: 065
  3. RICE [Concomitant]
     Active Substance: BROWN RICE\RICE
  4. IFOSFAMIDE [Concomitant]
     Active Substance: IFOSFAMIDE
  5. CARBOPLATIN [Concomitant]
     Active Substance: CARBOPLATIN
  6. ETOPOSIDE [Concomitant]
     Active Substance: ETOPOSIDE

REACTIONS (3)
  - Thrombocytopenia [Unknown]
  - Seizure [Unknown]
  - Off label use [Unknown]
